FAERS Safety Report 21243935 (Version 1)
Quarter: 2022Q3

REPORT INFORMATION
  Report Type: Spontaneous
  Country: GB (occurrence: GB)
  Receive Date: 20220823
  Receipt Date: 20220823
  Transmission Date: 20221027
  Serious: Yes (Other)
  Sender: FDA-Public Use
  Company Number: GB-MHRA-MED-202208172148596140-JGFYW

PATIENT
  Age: 21 Year
  Sex: Female

DRUGS (1)
  1. MIRTAZAPINE [Suspect]
     Active Substance: MIRTAZAPINE
     Indication: Depression
     Dosage: 30 MILLIGRAM, HS, (REDUCED TO 0)
     Route: 065

REACTIONS (4)
  - Emotional distress [Recovered/Resolved]
  - Hallucination [Recovered/Resolved]
  - Anxiety [Recovering/Resolving]
  - Agitation [Recovered/Resolved]
